FAERS Safety Report 6487670-1 (Version None)
Quarter: 2009Q4

REPORT INFORMATION
  Report Type: 
  Country: None (occurrence: None)
  Receive Date: 20091210
  Receipt Date: 20091201
  Transmission Date: 20100525
  Serious: No
  Sender: FDA-Public Use
  Company Number: IT-ELI_LILLY_AND_COMPANY-IT200911001518

PATIENT
  Sex: Male

DRUGS (5)
  1. BYETTA [Suspect]
     Indication: TYPE 2 DIABETES MELLITUS
     Dosage: 10 UG, DAILY (1/D)
     Route: 065
     Dates: start: 20090601, end: 20090101
  2. BYETTA [Suspect]
     Dosage: 20 UG, DAILY (1/D)
     Route: 058
     Dates: start: 20090610, end: 20091101
  3. METFORMIN HCL [Concomitant]
     Dosage: 1700 MG, 2/D
     Route: 048
     Dates: start: 20090101, end: 20091104
  4. GLICLAZIDE [Concomitant]
     Dosage: 60 MG, UNKNOWN
     Route: 048
     Dates: start: 20061010, end: 20091104
  5. ROSUVASTATIN [Concomitant]
     Dosage: 10 MG, UNKNOWN
     Route: 048
     Dates: start: 20060101, end: 20091104

REACTIONS (8)
  - ABDOMINAL PAIN [None]
  - BLOOD ALKALINE PHOSPHATASE INCREASED [None]
  - BLOOD AMYLASE INCREASED [None]
  - COUGH [None]
  - LIPASE INCREASED [None]
  - NAUSEA [None]
  - PANCREATIC DISORDER [None]
  - VOMITING [None]
